FAERS Safety Report 11747981 (Version 1)
Quarter: 2015Q4

REPORT INFORMATION
  Report Type: Spontaneous
  Country: FR (occurrence: FR)
  Receive Date: 20151117
  Receipt Date: 20151117
  Transmission Date: 20160304
  Serious: Yes (Other)
  Sender: FDA-Public Use
  Company Number: FR-GLAXOSMITHKLINE-FR2015GSK161912

PATIENT
  Age: 42 Year
  Sex: Female

DRUGS (4)
  1. TERALITHE [Concomitant]
     Active Substance: LITHIUM CARBONATE
     Dosage: UNK
  2. ANAFRANIL [Interacting]
     Active Substance: CLOMIPRAMINE HYDROCHLORIDE
     Indication: DEPRESSION
     Dosage: 150 MG, 1D
     Route: 048
     Dates: start: 20150921
  3. ZYBAN [Suspect]
     Active Substance: BUPROPION HYDROCHLORIDE
     Indication: DEPRESSION
     Dosage: 150 MG, 1D
     Route: 048
     Dates: start: 20150928
  4. SERESTA [Concomitant]
     Active Substance: OXAZEPAM
     Dosage: UNK

REACTIONS (4)
  - Product use issue [Unknown]
  - Urinary retention [Unknown]
  - Mucosal dryness [Unknown]
  - Drug level increased [Unknown]

NARRATIVE: CASE EVENT DATE: 201509
